FAERS Safety Report 7171487-9 (Version None)
Quarter: 2010Q4

REPORT INFORMATION
  Report Type: 
  Country: None (occurrence: None)
  Receive Date: 20101217
  Receipt Date: 20101207
  Transmission Date: 20110411
  Serious: Yes (Hospitalization)
  Sender: FDA-Public Use
  Company Number: ES-SANOFI-AVENTIS-2010SA074412

PATIENT
  Age: 27 Year
  Sex: Male

DRUGS (5)
  1. RIFALDIN [Suspect]
     Route: 048
  2. PREDNISONE [Suspect]
     Route: 048
  3. ISONIAZID [Concomitant]
     Route: 048
  4. ETHAMBUTOL HYDROCHLORIDE [Concomitant]
  5. PYRAZINAMIDE [Concomitant]

REACTIONS (4)
  - ASTHENIA [None]
  - HEADACHE [None]
  - TREMOR [None]
  - TUBERCULOMA OF CENTRAL NERVOUS SYSTEM [None]
